FAERS Safety Report 6848865-8 (Version None)
Quarter: 2010Q3

REPORT INFORMATION
  Report Type: 
  Country: None (occurrence: None)
  Receive Date: 20100716
  Receipt Date: 20070920
  Transmission Date: 20110219
  Serious: No
  Sender: FDA-Public Use
  Company Number: US-PFIZER INC-2007080778

PATIENT
  Sex: Female

DRUGS (2)
  1. CHANTIX [Suspect]
     Indication: SMOKING CESSATION THERAPY
     Dates: start: 20070901
  2. VITAMIN B [Concomitant]
     Indication: HYPOVITAMINOSIS

REACTIONS (6)
  - ABNORMAL DREAMS [None]
  - BLOOD DISORDER [None]
  - MALAISE [None]
  - NAUSEA [None]
  - SKIN LACERATION [None]
  - SLEEP DISORDER [None]
